FAERS Safety Report 25858872 (Version 1)
Quarter: 2025Q3

REPORT INFORMATION
  Report Type: Report from Study
  Country: KR (occurrence: KR)
  Receive Date: 20250929
  Receipt Date: 20250929
  Transmission Date: 20251021
  Serious: Yes (Hospitalization)
  Sender: MYLAN
  Company Number: KR-MYLANLABS-2025M1081352

PATIENT
  Age: 67 Year
  Sex: Male

DRUGS (28)
  1. PREGABALIN [Suspect]
     Active Substance: PREGABALIN
     Indication: Diabetic neuropathy
     Dosage: UNK QD
     Dates: start: 20200814, end: 20200824
  2. PREGABALIN [Suspect]
     Active Substance: PREGABALIN
     Dosage: UNK QD
     Route: 048
     Dates: start: 20200814, end: 20200824
  3. PREGABALIN [Suspect]
     Active Substance: PREGABALIN
     Dosage: UNK QD
     Route: 048
     Dates: start: 20200814, end: 20200824
  4. PREGABALIN [Suspect]
     Active Substance: PREGABALIN
     Dosage: UNK QD
     Dates: start: 20200814, end: 20200824
  5. PIOGLITAZONE HYDROCHLORIDE [Concomitant]
     Active Substance: PIOGLITAZONE HYDROCHLORIDE
     Dosage: UNK, QD
     Dates: start: 20180105
  6. PIOGLITAZONE HYDROCHLORIDE [Concomitant]
     Active Substance: PIOGLITAZONE HYDROCHLORIDE
     Dosage: UNK, QD
     Route: 048
     Dates: start: 20180105
  7. PIOGLITAZONE HYDROCHLORIDE [Concomitant]
     Active Substance: PIOGLITAZONE HYDROCHLORIDE
     Dosage: UNK, QD
     Route: 048
     Dates: start: 20180105
  8. PIOGLITAZONE HYDROCHLORIDE [Concomitant]
     Active Substance: PIOGLITAZONE HYDROCHLORIDE
     Dosage: UNK, QD
     Dates: start: 20180105
  9. PITAVASTATIN [Concomitant]
     Active Substance: PITAVASTATIN
     Dosage: UNK, QD
     Dates: start: 20140304
  10. PITAVASTATIN [Concomitant]
     Active Substance: PITAVASTATIN
     Dosage: UNK, QD
     Route: 048
     Dates: start: 20140304
  11. PITAVASTATIN [Concomitant]
     Active Substance: PITAVASTATIN
     Dosage: UNK, QD
     Route: 048
     Dates: start: 20140304
  12. PITAVASTATIN [Concomitant]
     Active Substance: PITAVASTATIN
     Dosage: UNK, QD
     Dates: start: 20140304
  13. CILOSTAZOL [Concomitant]
     Active Substance: CILOSTAZOL
     Dosage: UNK, QD
     Dates: start: 20190423
  14. CILOSTAZOL [Concomitant]
     Active Substance: CILOSTAZOL
     Dosage: UNK, QD
     Route: 048
     Dates: start: 20190423
  15. CILOSTAZOL [Concomitant]
     Active Substance: CILOSTAZOL
     Dosage: UNK, QD
     Route: 048
     Dates: start: 20190423
  16. CILOSTAZOL [Concomitant]
     Active Substance: CILOSTAZOL
     Dosage: UNK, QD
     Dates: start: 20190423
  17. METFORMIN HYDROCHLORIDE [Concomitant]
     Active Substance: METFORMIN HYDROCHLORIDE
     Dosage: UNK, QD
     Dates: start: 20180913
  18. METFORMIN HYDROCHLORIDE [Concomitant]
     Active Substance: METFORMIN HYDROCHLORIDE
     Dosage: UNK, QD
     Route: 048
     Dates: start: 20180913
  19. METFORMIN HYDROCHLORIDE [Concomitant]
     Active Substance: METFORMIN HYDROCHLORIDE
     Dosage: UNK, QD
     Route: 048
     Dates: start: 20180913
  20. METFORMIN HYDROCHLORIDE [Concomitant]
     Active Substance: METFORMIN HYDROCHLORIDE
     Dosage: UNK, QD
     Dates: start: 20180913
  21. TAMSULOSIN [Concomitant]
     Active Substance: TAMSULOSIN
     Dosage: UNK, QD
     Dates: start: 20200317
  22. TAMSULOSIN [Concomitant]
     Active Substance: TAMSULOSIN
     Dosage: UNK, QD
     Route: 048
     Dates: start: 20200317
  23. TAMSULOSIN [Concomitant]
     Active Substance: TAMSULOSIN
     Dosage: UNK, QD
     Route: 048
     Dates: start: 20200317
  24. TAMSULOSIN [Concomitant]
     Active Substance: TAMSULOSIN
     Dosage: UNK, QD
     Dates: start: 20200317
  25. LYRICA [Concomitant]
     Active Substance: PREGABALIN
     Dosage: UNK, QD
     Dates: start: 20200826
  26. LYRICA [Concomitant]
     Active Substance: PREGABALIN
     Dosage: UNK, QD
     Route: 048
     Dates: start: 20200826
  27. LYRICA [Concomitant]
     Active Substance: PREGABALIN
     Dosage: UNK, QD
     Route: 048
     Dates: start: 20200826
  28. LYRICA [Concomitant]
     Active Substance: PREGABALIN
     Dosage: UNK, QD
     Dates: start: 20200826

REACTIONS (2)
  - Pulmonary embolism [Recovering/Resolving]
  - Product use in unapproved indication [Unknown]

NARRATIVE: CASE EVENT DATE: 20200825
